FAERS Safety Report 21917046 (Version 2)
Quarter: 2023Q1

REPORT INFORMATION
  Report Type: Spontaneous
  Country: US (occurrence: US)
  Receive Date: 20230126
  Receipt Date: 20230213
  Transmission Date: 20230417
  Serious: Yes (Other)
  Sender: FDA-Public Use
  Company Number: US-BAUSCHBL-2023BNL000566

PATIENT
  Age: 72 Year
  Sex: Female
  Weight: 68 kg

DRUGS (4)
  1. PHENYLEPHRINE HYDROCHLORIDE OPHTHALMIC [Suspect]
     Active Substance: PHENYLEPHRINE HYDROCHLORIDE
     Indication: Routine health maintenance
     Dosage: ONE TIME USE FOR SURGERY
     Route: 047
     Dates: start: 20230113, end: 20230113
  2. PHENYLEPHRINE HYDROCHLORIDE OPHTHALMIC [Suspect]
     Active Substance: PHENYLEPHRINE HYDROCHLORIDE
     Indication: Preoperative care
  3. TROPICAMIDE [Suspect]
     Active Substance: TROPICAMIDE
     Indication: Preoperative care
     Route: 047
     Dates: start: 20230113, end: 20230113
  4. FLUORESCEIN [Suspect]
     Active Substance: FLUORESCEIN
     Indication: Preoperative care
     Route: 047
     Dates: start: 20230113, end: 20230113

REACTIONS (1)
  - Anaphylactic reaction [Not Recovered/Not Resolved]

NARRATIVE: CASE EVENT DATE: 20230113
